FAERS Safety Report 8200114-4 (Version None)
Quarter: 2012Q1

REPORT INFORMATION
  Report Type: 
  Country: None (occurrence: None)
  Receive Date: 20120309
  Receipt Date: 20120309
  Transmission Date: 20120608
  Serious: Yes (Other)
  Sender: FDA-Public Use
  Company Number: None

PATIENT
  Sex: Male

DRUGS (2)
  1. TIKOSYN [Suspect]
     Indication: CARDIAC DISORDER
     Dosage: 0.5MG TWICE A DAY BY MOUTH
     Route: 048
     Dates: start: 20060707, end: 20120306
  2. CARBIDOPA [Concomitant]

REACTIONS (1)
  - PARAESTHESIA [None]
